FAERS Safety Report 13653635 (Version 1)
Quarter: 2017Q2

REPORT INFORMATION
  Report Type: Spontaneous
  Country: US (occurrence: US)
  Receive Date: 20170614
  Receipt Date: 20170614
  Transmission Date: 20170830
  Serious: Yes (Disabling, Other)
  Sender: FDA-Public Use
  Company Number: US-TEVA-778967USA

PATIENT
  Sex: Male

DRUGS (2)
  1. CORDARONE [Suspect]
     Active Substance: AMIODARONE HYDROCHLORIDE
     Indication: ATRIAL FIBRILLATION
     Route: 065
  2. AMIODARONE [Suspect]
     Active Substance: AMIODARONE
     Indication: ATRIAL FIBRILLATION
     Route: 065

REACTIONS (22)
  - Asthenia [Unknown]
  - Weight decreased [Unknown]
  - Toxicity to various agents [Unknown]
  - Cough [Unknown]
  - Adverse event [Unknown]
  - Chest pain [Unknown]
  - Hypothyroidism [Unknown]
  - Oedema [Unknown]
  - Pulmonary hypertension [Unknown]
  - Visual acuity reduced [Unknown]
  - Macular degeneration [Unknown]
  - Restlessness [Unknown]
  - Liver function test abnormal [Unknown]
  - Fatigue [Unknown]
  - Dyspnoea [Unknown]
  - Insomnia [Unknown]
  - Blindness [Unknown]
  - Rash [Unknown]
  - Off label use [Unknown]
  - Anaemia [Unknown]
  - Renal disorder [Unknown]
  - Irritability [Unknown]

NARRATIVE: CASE EVENT DATE: 201602
